FAERS Safety Report 6752888-7 (Version None)
Quarter: 2010Q2

REPORT INFORMATION
  Report Type: 
  Country: None (occurrence: None)
  Receive Date: 20100602
  Receipt Date: 20100602
  Transmission Date: 20101027
  Serious: Yes (Other)
  Sender: FDA-Public Use
  Company Number: None

PATIENT
  Age: 64 Year
  Sex: Female
  Weight: 64.4108 kg

DRUGS (4)
  1. CLINDAMYCIN [Suspect]
     Indication: GINGIVAL OPERATION
     Dosage: ONE CAPSULE PO
     Route: 048
     Dates: start: 20100304, end: 20100311
  2. CLINDAMYCIN [Suspect]
     Indication: PROPHYLAXIS
     Dosage: ONE CAPSULE PO
     Route: 048
     Dates: start: 20100304, end: 20100311
  3. METRONIDAZOLE 250MG TAB [Suspect]
     Indication: ABDOMINAL DISCOMFORT
     Dosage: ONE TABLET 2 PER DAY PO
     Route: 048
     Dates: start: 20100526, end: 20100526
  4. METRONIDAZOLE 250MG TAB [Suspect]
     Indication: MUCOUS STOOLS
     Dosage: ONE TABLET 2 PER DAY PO
     Route: 048
     Dates: start: 20100526, end: 20100526

REACTIONS (5)
  - ABDOMINAL DISCOMFORT [None]
  - COORDINATION ABNORMAL [None]
  - DIZZINESS [None]
  - TACHYCARDIA [None]
  - TREMOR [None]
